FAERS Safety Report 15608942 (Version 2)
Quarter: 2019Q2

REPORT INFORMATION
  Report Type: Spontaneous
  Country: US (occurrence: US)
  Receive Date: 20181112
  Receipt Date: 20190403
  Transmission Date: 20190711
  Serious: Yes (Other)
  Sender: FDA-Public Use
  Company Number: US-SA-2018SA307958

PATIENT
  Age: 54 Year
  Sex: Female
  Weight: 63.5 kg

DRUGS (5)
  1. CELEBREX [Concomitant]
     Active Substance: CELECOXIB
     Indication: PRODUCT USED FOR UNKNOWN INDICATION
     Dosage: UNK UNK, UNK
  2. DOCETAXEL. [Suspect]
     Active Substance: DOCETAXEL
     Indication: BREAST CANCER FEMALE
     Dosage: 125 AND 100 MG
     Route: 042
     Dates: start: 20150311, end: 20150311
  3. DOCETAXEL. [Suspect]
     Active Substance: DOCETAXEL
     Dosage: 125 AND 100 MG
     Route: 042
     Dates: start: 20150702, end: 20150702
  4. LEVOTHYROXINE. [Concomitant]
     Active Substance: LEVOTHYROXINE
     Indication: PRODUCT USED FOR UNKNOWN INDICATION
     Dosage: UNK UNK, UNK
     Route: 065
  5. PARAPLATIN [Concomitant]
     Active Substance: CARBOPLATIN
     Indication: PRODUCT USED FOR UNKNOWN INDICATION
     Dosage: UNK UNK, UNK
     Route: 065

REACTIONS (3)
  - Alopecia [Not Recovered/Not Resolved]
  - Psychological trauma [Unknown]
  - Emotional distress [Unknown]

NARRATIVE: CASE EVENT DATE: 201504
